FAERS Safety Report 17644098 (Version 2)
Quarter: 2020Q2

REPORT INFORMATION
  Report Type: Report from Study
  Country: US (occurrence: US)
  Receive Date: 20200408
  Receipt Date: 20200501
  Transmission Date: 20200713
  Serious: No
  Sender: FDA-Public Use
  Company Number: US-B.I. PHARMACEUTICALS,INC./RIDGEFIELD-2020-MR-018669

PATIENT
  Sex: Male

DRUGS (1)
  1. JARDIANCE [Suspect]
     Active Substance: EMPAGLIFLOZIN
     Indication: PRODUCT USED FOR UNKNOWN INDICATION
     Route: 065
     Dates: start: 2020

REACTIONS (7)
  - Glycosylated haemoglobin decreased [Unknown]
  - Weight decreased [Unknown]
  - Drug ineffective [Unknown]
  - Pollakiuria [Unknown]
  - Poor quality sleep [Unknown]
  - Blood glucose increased [Unknown]
  - Off label use [Unknown]
